FAERS Safety Report 13738874 (Version 1)
Quarter: 2017Q3

REPORT INFORMATION
  Report Type: Spontaneous
  Country: US (occurrence: US)
  Receive Date: 20170710
  Receipt Date: 20170710
  Transmission Date: 20171127
  Serious: Yes (Hospitalization, Other)
  Sender: FDA-Public Use
  Company Number: US-SAOL THERAPEUTICS-2017SAO01005

PATIENT
  Age: 25 Year
  Sex: Female

DRUGS (3)
  1. BACLOFEN. [Suspect]
     Active Substance: BACLOFEN
     Dosage: 591 ?G, \DAY
     Route: 037
  2. LIORESAL [Suspect]
     Active Substance: BACLOFEN
     Dosage: 224.78 ?G, \DAY
     Route: 037
     Dates: start: 20140314
  3. LIORESAL [Suspect]
     Active Substance: BACLOFEN
     Dosage: 199.80 ?G, \DAY
     Route: 037
     Dates: start: 20140306, end: 20140314

REACTIONS (4)
  - Headache [None]
  - Device dislocation [Unknown]
  - Implant site extravasation [Unknown]
  - Drug withdrawal syndrome [Unknown]

NARRATIVE: CASE EVENT DATE: 20140314
